FAERS Safety Report 19631444 (Version 2)
Quarter: 2022Q3

REPORT INFORMATION
  Report Type: Spontaneous
  Country: US (occurrence: US)
  Receive Date: 20210729
  Receipt Date: 20220909
  Transmission Date: 20221027
  Serious: Yes (Other)
  Sender: FDA-Public Use
  Company Number: US-SA-2021SA251421

PATIENT
  Age: 66 Year
  Sex: Male

DRUGS (1)
  1. ZANTAC [Suspect]
     Active Substance: RANITIDINE HYDROCHLORIDE
     Indication: Dyspepsia
     Dosage: UNK, QD (DOSE: OTHER)
     Dates: start: 200509, end: 201902

REACTIONS (2)
  - Neoplasm malignant [Unknown]
  - Gastric cancer stage II [Not Recovered/Not Resolved]

NARRATIVE: CASE EVENT DATE: 20200201
